FAERS Safety Report 7805291-2 (Version None)
Quarter: 2011Q4

REPORT INFORMATION
  Report Type: 
  Country: None (occurrence: None)
  Receive Date: 20111010
  Receipt Date: 20111004
  Transmission Date: 20120403
  Serious: Yes (Disabling, Other)
  Sender: FDA-Public Use
  Company Number: US-PFIZER INC-2010171950

PATIENT
  Sex: Female
  Weight: 58.05 kg

DRUGS (13)
  1. ZANTAC [Suspect]
     Indication: GASTROOESOPHAGEAL REFLUX DISEASE
  2. XANAX [Suspect]
     Indication: ANXIETY
     Dosage: 1 AND 1/4 MG TABLETS (BY SPLITTING 1MG) DAILY
     Route: 048
     Dates: start: 20100608
  3. XANAX [Suspect]
     Dosage: 3/4 TABLET,DAILY
     Route: 048
  4. BENICAR [Suspect]
     Indication: HYPERTENSION
     Dosage: 40MG, UNK
     Dates: start: 20100101
  5. ZANTAC [Suspect]
     Indication: BURN OESOPHAGEAL
     Dosage: 600 MG, DAILY
  6. NORVASC [Suspect]
     Indication: HYPERTENSION
     Dosage: 5MG IN AM, 2.5MG IN PM
     Route: 048
     Dates: start: 20100101
  7. ASPIRIN [Concomitant]
     Dosage: 81 MG, 1X/DAY
  8. CATAPRES [Suspect]
     Indication: HYPERTENSION
     Dosage: UNK, WEEKLY
     Route: 062
     Dates: start: 20100101
  9. CELEXA [Suspect]
     Indication: ANXIETY
     Dosage: 120 MG, UNK
  10. PLAVIX [Suspect]
     Indication: ANTICOAGULANT THERAPY
     Dosage: UNK
  11. CELEXA [Suspect]
     Dosage: 10 MG, UNK
  12. METOPROLOL TARTRATE [Suspect]
     Indication: HYPERTENSION
     Dosage: 20 MG, 2X/DAY
     Dates: start: 20100101
  13. LISINOPRIL [Suspect]
     Indication: HYPERTENSION
     Dosage: UNK

REACTIONS (14)
  - ANXIETY [None]
  - BOWEL MOVEMENT IRREGULARITY [None]
  - HYPERTENSION [None]
  - DECREASED APPETITE [None]
  - BURN OESOPHAGEAL [None]
  - MUSCLE TIGHTNESS [None]
  - ACTIVITIES OF DAILY LIVING IMPAIRED [None]
  - GASTROINTESTINAL DISORDER [None]
  - DRUG DEPENDENCE [None]
  - DRUG HYPERSENSITIVITY [None]
  - TONGUE DISORDER [None]
  - DRY MOUTH [None]
  - WEIGHT DECREASED [None]
  - HAIR TEXTURE ABNORMAL [None]
